FAERS Safety Report 5117015-0 (Version None)
Quarter: 2006Q3

REPORT INFORMATION
  Report Type: 
  Country: None (occurrence: None)
  Receive Date: 20060920
  Receipt Date: 20060908
  Transmission Date: 20061208
  Serious: Yes (Other)
  Sender: FDA-Public Use
  Company Number: 2006BH013321

PATIENT
  Sex: Male

DRUGS (1)
  1. RECOMBINATE [Suspect]
     Indication: FACTOR VIII DEFICIENCY
     Dosage: 1000 UNITS;AS NEEDED;

REACTIONS (2)
  - DRUG INEFFECTIVE [None]
  - FACTOR VIII INHIBITION [None]
